FAERS Safety Report 5269512-5 (Version None)
Quarter: 2007Q1

REPORT INFORMATION
  Report Type: 
  Country: None (occurrence: None)
  Receive Date: 20070320
  Receipt Date: 20070314
  Transmission Date: 20070707
  Serious: Yes (Death)
  Sender: FDA-Public Use
  Company Number: GB-BRISTOL-MYERS SQUIBB COMPANY-13705173

PATIENT
  Age: 63 Year
  Sex: Male

DRUGS (5)
  1. ERBITUX [Suspect]
     Indication: SQUAMOUS CELL CARCINOMA
     Route: 041
  2. ERBITUX [Suspect]
     Indication: COLORECTAL CANCER
     Route: 041
  3. RADIOTHERAPY [Concomitant]
     Indication: COLORECTAL CANCER
  4. INSULIN [Concomitant]
     Indication: DIABETES MELLITUS NON-INSULIN-DEPENDENT
  5. CARDIAC MEDICATIONS [Concomitant]

REACTIONS (1)
  - RENAL FAILURE CHRONIC [None]
